FAERS Safety Report 8422986 (Version 4)
Quarter: 2014Q1

REPORT INFORMATION
  Report Type: Report from Study
  Country: US (occurrence: US)
  Receive Date: 20120223
  Receipt Date: 20140313
  Transmission Date: 20141002
  Serious: Yes (Hospitalization, Other)
  Sender: FDA-Public Use
  Company Number: US-ALEXION PHARMACEUTICALS INC.-A201200315

PATIENT
  Age: 44 Year
  Sex: Female

DRUGS (9)
  1. SOLIRIS [Suspect]
     Indication: PAROXYSMAL NOCTURNAL HAEMOGLOBINURIA
     Dosage: 600 MG, Q2W
     Route: 042
     Dates: start: 2007, end: 2007
  2. SOLIRIS [Suspect]
     Dosage: 900 MG, Q2W
     Route: 042
     Dates: start: 2007
  3. NEXIUM [Concomitant]
     Indication: GASTROOESOPHAGEAL REFLUX DISEASE
     Dosage: 40 MG, QD
     Route: 048
  4. ZOLOFT [Concomitant]
     Indication: MENOPAUSE
     Dosage: 50 MG, QD
     Route: 048
  5. XANAX [Concomitant]
     Indication: ANXIETY
     Dosage: 2 MG, BID, PRN
     Route: 048
  6. KEPPRA [Concomitant]
     Indication: CONVULSION
     Dosage: 750 MG QAM/1500 MG QPM
     Route: 048
  7. IMITREX [Concomitant]
     Indication: MIGRAINE
     Dosage: UNK
  8. FOLIC ACID [Concomitant]
     Dosage: 1 MG, QD
     Route: 048
  9. MAGNESIUM OXIDE [Concomitant]
     Dosage: 400 MG, QD
     Route: 048

REACTIONS (5)
  - Cerebrovascular accident [Recovered/Resolved]
  - Venous thrombosis [Recovered/Resolved]
  - Subarachnoid haemorrhage [Recovered/Resolved]
  - Memory impairment [Unknown]
  - International normalised ratio increased [Recovered/Resolved]
